FAERS Safety Report 18793726 (Version 1)
Quarter: 2021Q1

REPORT INFORMATION
  Report Type: Spontaneous
  Country: NL (occurrence: NL)
  Receive Date: 20210127
  Receipt Date: 20210127
  Transmission Date: 20210419
  Serious: Yes (Hospitalization, Disabling)
  Sender: FDA-Public Use
  Company Number: NL-TEVA-2021-NL-1872505

PATIENT
  Sex: Female
  Weight: 82 kg

DRUGS (1)
  1. CIPROFLOXACINE TABLET 500MG / BRAND NAME NOT SPECIFIED [Suspect]
     Active Substance: CIPROFLOXACIN
     Indication: KIDNEY INFECTION
     Dosage: 1000 MILLIGRAM DAILY; 2X PER DAY 1 PIECE
     Route: 065
     Dates: start: 20201223, end: 20201225

REACTIONS (6)
  - Heart rate increased [Not Recovered/Not Resolved]
  - Syncope [Not Recovered/Not Resolved]
  - Pruritus [Not Recovered/Not Resolved]
  - Arthralgia [Not Recovered/Not Resolved]
  - Joint stiffness [Not Recovered/Not Resolved]
  - Chest discomfort [Not Recovered/Not Resolved]
